FAERS Safety Report 6168327-3 (Version None)
Quarter: 2009Q2

REPORT INFORMATION
  Report Type: 
  Country: None (occurrence: None)
  Receive Date: 20090423
  Receipt Date: 20090415
  Transmission Date: 20091009
  Serious: Yes (Life-Threatening)
  Sender: FDA-Public Use
  Company Number: 245895

PATIENT
  Age: 56 Year
  Sex: Female

DRUGS (1)
  1. CARBOPLATIN [Suspect]
     Indication: OVARIAN CANCER
     Dosage: 343 MG, NOT REPORTED, INTRAVENOUS
     Route: 042
     Dates: start: 20090401

REACTIONS (2)
  - ANAPHYLACTIC REACTION [None]
  - ANXIETY [None]
